FAERS Safety Report 5980193-5 (Version None)
Quarter: 2008Q4

REPORT INFORMATION
  Report Type: 
  Country: None (occurrence: None)
  Receive Date: 20081205
  Receipt Date: 20081128
  Transmission Date: 20090506
  Serious: Yes (Hospitalization)
  Sender: FDA-Public Use
  Company Number: AU-BRISTOL-MYERS SQUIBB COMPANY-14428395

PATIENT
  Age: 75 Year
  Sex: Male

DRUGS (2)
  1. CETUXIMAB [Suspect]
     Indication: COLORECTAL CANCER
     Dosage: FIRST INFUSION 09-OCT-2008
     Route: 042
     Dates: start: 20081120
  2. ERLOTINIB [Suspect]
     Indication: COLORECTAL CANCER
     Dosage: FIRST DOSE 09-OCT-2008
     Route: 048
     Dates: start: 20081127

REACTIONS (1)
  - BLOOD BILIRUBIN INCREASED [None]
